FAERS Safety Report 7015993-6 (Version None)
Quarter: 2010Q3

REPORT INFORMATION
  Report Type: 
  Country: None (occurrence: None)
  Receive Date: 20100927
  Receipt Date: 20100616
  Transmission Date: 20110219
  Serious: No
  Sender: FDA-Public Use
  Company Number: US-ASTRAZENECA-2010SE16460

PATIENT
  Age: 27418 Day
  Sex: Female

DRUGS (19)
  1. ARIMIDEX [Suspect]
     Indication: BREAST CANCER
     Route: 048
     Dates: start: 20080117
  2. ARIMIDEX [Suspect]
     Route: 048
     Dates: start: 20070101
  3. CRESTOR [Suspect]
     Route: 048
  4. SYMBICORT [Concomitant]
     Dosage: TWO PUFFS AS NEEDED
  5. SYMBICORT [Concomitant]
  6. LOPRESSOR [Concomitant]
  7. SINGULAIR [Concomitant]
  8. ASPIRIN [Concomitant]
  9. PROTONIX [Concomitant]
  10. PLAVIX [Concomitant]
  11. AZOR [Concomitant]
     Dosage: 10MG/40MG ONE DAILY
  12. SYNTHROID [Concomitant]
  13. TYLENOL [Concomitant]
     Dosage: OCCASIONALLY
  14. POTASSIUM CHLORIDE [Concomitant]
     Dosage: ONE AND HALF TEASPOONS
  15. ELAVIL [Concomitant]
  16. METANX [Concomitant]
  17. ADRIAMYCIN PFS [Concomitant]
  18. CYTOXAL [Concomitant]
  19. HERCEPTIN [Concomitant]

REACTIONS (3)
  - CATARACT [None]
  - CATHETER REMOVAL [None]
  - JOINT INJURY [None]
